FAERS Safety Report 15758181 (Version 1)
Quarter: 2018Q4

REPORT INFORMATION
  Report Type: Spontaneous
  Country: PL (occurrence: PL)
  Receive Date: 20181225
  Receipt Date: 20181225
  Transmission Date: 20190205
  Serious: Yes (Hospitalization, Other)
  Sender: FDA-Public Use
  Company Number: PL-AUROBINDO-AUR-APL-2018-060536

PATIENT
  Age: 7 Year
  Sex: Male

DRUGS (4)
  1. CEFUROXIME. [Suspect]
     Active Substance: CEFUROXIME
     Indication: UPPER RESPIRATORY TRACT INFECTION
     Dosage: UNK
     Route: 065
  2. CEFUROXIME. [Suspect]
     Active Substance: CEFUROXIME
     Dosage: UNK
     Route: 065
  3. AMOXICILLIN. [Suspect]
     Active Substance: AMOXICILLIN
     Indication: PRODUCT USED FOR UNKNOWN INDICATION
     Dosage: UNK
     Route: 065
  4. CEFTRIAXONE SODIUM. [Suspect]
     Active Substance: CEFTRIAXONE SODIUM
     Indication: ANTIBIOTIC THERAPY
     Dosage: UNK
     Route: 065

REACTIONS (18)
  - Vomiting [Recovering/Resolving]
  - Haematuria [Recovering/Resolving]
  - Groin pain [Recovering/Resolving]
  - Oedema peripheral [Recovering/Resolving]
  - Petechiae [Recovering/Resolving]
  - Hand-foot-and-mouth disease [Recovering/Resolving]
  - Rash macular [Recovering/Resolving]
  - Pain in extremity [Recovering/Resolving]
  - Abdominal pain [Recovering/Resolving]
  - Back pain [Recovering/Resolving]
  - Henoch-Schonlein purpura [Recovering/Resolving]
  - Ecchymosis [Recovering/Resolving]
  - Haemorrhage [Recovering/Resolving]
  - Dermatitis bullous [Recovering/Resolving]
  - Hepatomegaly [Recovering/Resolving]
  - Glomerulonephritis acute [Recovering/Resolving]
  - Scrotal pain [Recovering/Resolving]
  - Haematoma [Recovering/Resolving]
